FAERS Safety Report 5881597-1 (Version None)
Quarter: 2008Q3

REPORT INFORMATION
  Report Type: 
  Country: None (occurrence: None)
  Receive Date: 20080912
  Receipt Date: 20080702
  Transmission Date: 20090109
  Serious: No
  Sender: FDA-Public Use
  Company Number: US-ABBOTT-08P-163-0460722-00

PATIENT
  Sex: Female
  Weight: 113.5 kg

DRUGS (7)
  1. HUMIRA [Suspect]
     Indication: RHEUMATOID ARTHRITIS
     Route: 058
     Dates: start: 20080611
  2. PREDNISONE TAB [Suspect]
     Indication: HERPES ZOSTER
     Route: 048
     Dates: start: 20080601, end: 20080601
  3. PREDNISONE TAB [Suspect]
     Route: 048
     Dates: start: 20080601, end: 20080601
  4. PREDNISONE TAB [Suspect]
     Route: 048
     Dates: start: 20080601, end: 20080601
  5. PREDNISONE TAB [Suspect]
     Route: 048
     Dates: start: 20080601, end: 20080601
  6. PREDNISONE TAB [Suspect]
     Route: 048
     Dates: start: 20080601, end: 20080601
  7. PREDNISONE TAB [Suspect]
     Route: 048
     Dates: start: 20080601, end: 20080601

REACTIONS (5)
  - DYSPNOEA [None]
  - HERPES ZOSTER [None]
  - JOINT SWELLING [None]
  - MUSCULOSKELETAL PAIN [None]
  - OEDEMA PERIPHERAL [None]
